FAERS Safety Report 4370506-2 (Version None)
Quarter: 2004Q2

REPORT INFORMATION
  Report Type: 
  Country: None (occurrence: None)
  Receive Date: 20040601
  Receipt Date: 20031222
  Transmission Date: 20050107
  Serious: Yes (Other)
  Sender: FDA-Public Use
  Company Number: US049399

PATIENT
  Age: 73 Year
  Sex: Female
  Weight: 77.11 kg

DRUGS (7)
  1. ENBREL [Suspect]
     Indication: PSORIATIC ARTHROPATHY
     Dosage: 25 MG TWICE WEEKLY SC
     Route: 058
     Dates: start: 20030627
  2. CALCIUM [Concomitant]
  3. LEVOXYL [Concomitant]
  4. CONJUGATED ESTROGEN [Concomitant]
  5. HYDROXYZINE [Concomitant]
  6. MULTI-VITAMINS [Concomitant]
  7. TOCOPHEROL CONCENTRATE CAP [Concomitant]

REACTIONS (4)
  - BASAL CELL CARCINOMA [None]
  - CATARACT OPERATION [None]
  - INJECTION SITE REACTION [None]
  - SKIN HYPERPIGMENTATION [None]
